FAERS Safety Report 13053630 (Version 1)
Quarter: 2016Q4

REPORT INFORMATION
  Report Type: Spontaneous
  Country: IT (occurrence: IT)
  Receive Date: 20161222
  Receipt Date: 20161222
  Transmission Date: 20170207
  Serious: Yes (Other)
  Sender: FDA-Public Use
  Company Number: PHHY2016IT173625

PATIENT
  Age: 21 Year
  Sex: Male

DRUGS (1)
  1. CITALOPRAM [Suspect]
     Active Substance: CITALOPRAM HYDROBROMIDE
     Indication: MEDICATION ERROR
     Dosage: 80 MG, ONCE/SINGLE
     Route: 048
     Dates: start: 20161129, end: 20161129

REACTIONS (4)
  - Restlessness [Recovering/Resolving]
  - Poisoning [Recovering/Resolving]
  - Headache [Recovering/Resolving]
  - Medication error [Recovering/Resolving]

NARRATIVE: CASE EVENT DATE: 20161129
